FAERS Safety Report 23998806 (Version 1)
Quarter: 2024Q2

REPORT INFORMATION
  Report Type: Spontaneous
  Country: GB (occurrence: GB)
  Receive Date: 20240621
  Receipt Date: 20240621
  Transmission Date: 20240716
  Serious: Yes (Hospitalization)
  Sender: FDA-Public Use
  Company Number: GB-MLMSERVICE-20240604-PI087527-00229-1

PATIENT
  Age: 19 Year
  Sex: Female

DRUGS (3)
  1. BUPIVACAINE HYDROCHLORIDE [Suspect]
     Active Substance: BUPIVACAINE HYDROCHLORIDE\BUPIVACAINE HYDROCHLORIDE ANHYDROUS
     Indication: Spinal anaesthesia
     Dosage: 10 MILLIGRAM, 1 TOTAL
     Route: 065
  2. ALFENTANIL [Suspect]
     Active Substance: ALFENTANIL
     Indication: Spinal anaesthesia
     Dosage: UNK
     Route: 065
  3. DIAMORPHINE [Suspect]
     Active Substance: DIAMORPHINE
     Indication: Spinal anaesthesia
     Dosage: UNK
     Route: 065

REACTIONS (4)
  - Epidural lipomatosis [Recovered/Resolved]
  - Post lumbar puncture syndrome [Recovered/Resolved]
  - Dyspnoea [Recovered/Resolved]
  - Oxygen saturation decreased [Recovered/Resolved]
